FAERS Safety Report 8037474-3 (Version None)
Quarter: 2012Q1

REPORT INFORMATION
  Report Type: 
  Country: None (occurrence: None)
  Receive Date: 20120111
  Receipt Date: 20120106
  Transmission Date: 20120608
  Serious: Yes (Other)
  Sender: FDA-Public Use
  Company Number: US-PFIZER INC-2012000474

PATIENT
  Sex: Male
  Weight: 81 kg

DRUGS (16)
  1. METOPROLOL SUCCINATE [Concomitant]
     Indication: ATRIAL FIBRILLATION
     Dosage: 50 MG, DAILY
     Dates: start: 20050101
  2. OXYBUTYNIN [Concomitant]
     Indication: BLADDER DISORDER
     Dosage: 5 MG, 2X/DAY
     Dates: start: 20090101
  3. PAROXETINE [Concomitant]
     Indication: ANXIETY
     Dosage: UNK
  4. FOLIC ACID [Concomitant]
     Indication: RHEUMATOID ARTHRITIS
     Dosage: UNK
  5. WELLBUTRIN [Suspect]
     Dosage: UNK
  6. DIGOXIN [Concomitant]
     Indication: ATRIAL FIBRILLATION
     Dosage: 125 MG, DAILY
     Dates: start: 19860101
  7. SIMVASTATIN [Concomitant]
     Indication: BLOOD CHOLESTEROL INCREASED
     Dosage: 40 MG, DAILY
     Dates: start: 19980101
  8. METHOTREXATE [Concomitant]
     Indication: RHEUMATOID ARTHRITIS
     Dosage: 2.5 MG SIX TABLET IN A WEEK
     Dates: start: 20050101
  9. BIOTENE [Suspect]
  10. FOLIC ACID [Concomitant]
     Indication: SUPPLEMENTATION THERAPY
     Dosage: 1 MG, DAILY
     Dates: start: 20050101
  11. PAROXETINE HYDROCHLORIDE [Concomitant]
     Indication: ANXIETY
     Dosage: 30 MG, DAILY
     Dates: start: 20091001
  12. TOPROL-XL [Concomitant]
     Indication: ATRIAL FIBRILLATION
     Dosage: UNK
  13. CHANTIX [Suspect]
     Indication: SMOKING CESSATION THERAPY
     Dosage: 0.5 MG, DAILY
     Route: 048
     Dates: start: 20111227
  14. CHANTIX [Suspect]
     Dosage: 0.5 MG, 2X/DAY
     Route: 048
     Dates: start: 20111231
  15. CALCIUM [Concomitant]
     Dosage: UNK
  16. VITAMIN C [Concomitant]
     Dosage: UNK

REACTIONS (8)
  - DEPRESSED MOOD [None]
  - DRUG INEFFECTIVE [None]
  - ABNORMAL DREAMS [None]
  - MOUTH HAEMORRHAGE [None]
  - INSOMNIA [None]
  - ERYTHEMA [None]
  - IRRITABILITY [None]
  - STRESS [None]
